FAERS Safety Report 5271776-9 (Version None)
Quarter: 2007Q1

REPORT INFORMATION
  Report Type: 
  Country: None (occurrence: None)
  Receive Date: 20070321
  Receipt Date: 20070310
  Transmission Date: 20070707
  Serious: Yes (Other)
  Sender: FDA-Public Use
  Company Number: US-PFIZER INC-2007018679

PATIENT
  Sex: Female
  Weight: 56.7 kg

DRUGS (3)
  1. CHANTIX [Suspect]
     Indication: EX-SMOKER
  2. EFFEXOR [Concomitant]
  3. ALL OTHER THERAPEUTIC PRODUCTS [Concomitant]
     Indication: HYPERTENSION

REACTIONS (7)
  - AGITATION [None]
  - ANXIETY [None]
  - ASTHENIA [None]
  - DYSKINESIA [None]
  - MOOD SWINGS [None]
  - NIGHT SWEATS [None]
  - SOMNOLENCE [None]
